FAERS Safety Report 5982879-5 (Version None)
Quarter: 2008Q4

REPORT INFORMATION
  Report Type: 
  Country: None (occurrence: None)
  Receive Date: 20081205
  Receipt Date: 20081205
  Transmission Date: 20090506
  Serious: No
  Sender: FDA-Public Use
  Company Number: None

PATIENT
  Age: 27 Year
  Sex: Female
  Weight: 52.6173 kg

DRUGS (2)
  1. OCELLA-28 [Suspect]
     Indication: CONTRACEPTION
     Dosage: 1 PILL ONCE A DAY
  2. YASMIN [Suspect]

REACTIONS (10)
  - ABDOMINAL DISTENSION [None]
  - BREAST TENDERNESS [None]
  - FATIGUE [None]
  - HEADACHE [None]
  - HUNGER [None]
  - INITIAL INSOMNIA [None]
  - MOOD SWINGS [None]
  - NAUSEA [None]
  - THERAPEUTIC RESPONSE UNEXPECTED WITH DRUG SUBSTITUTION [None]
  - WEIGHT INCREASED [None]
